FAERS Safety Report 14561801 (Version 1)
Quarter: 2018Q1

REPORT INFORMATION
  Report Type: Report from Study
  Country: JP (occurrence: JP)
  Receive Date: 20180222
  Receipt Date: 20180222
  Transmission Date: 20180509
  Serious: Yes (Hospitalization, Other)
  Sender: FDA-Public Use
  Company Number: JP-ROCHE-2075455

PATIENT
  Age: 59 Year
  Sex: Female
  Weight: 48 kg

DRUGS (8)
  1. GEMZAR [Suspect]
     Active Substance: GEMCITABINE HYDROCHLORIDE
     Dosage: DOSE INTERVAL UNCERTAINTY
     Route: 041
  2. BEVACIZUMAB. [Suspect]
     Active Substance: BEVACIZUMAB
     Indication: MALIGNANT PERITONEAL NEOPLASM
     Dosage: CUM.DOSE PRIOR TO SAE:705
     Route: 041
     Dates: start: 20171109, end: 20171109
  3. DAIKENCHUTO [Concomitant]
     Active Substance: HERBALS
     Indication: CONSTIPATION
     Dosage: DOSAGE IS UNCERTAIN.
     Route: 048
     Dates: start: 20160928, end: 20171204
  4. GEMZAR [Suspect]
     Active Substance: GEMCITABINE HYDROCHLORIDE
     Indication: MALIGNANT PERITONEAL NEOPLASM
     Dosage: DOSE INTERVAL UNCERTAINTY?CUM.DOSE PRIOR TO SAE:2880
     Route: 041
     Dates: start: 20171109, end: 20171128
  5. URSO [Concomitant]
     Active Substance: URSODIOL
     Indication: HEPATIC FUNCTION ABNORMAL
     Dosage: DOSAGE IS UNCERTAIN.
     Route: 048
     Dates: start: 20161013, end: 20171204
  6. GLYCYRON (GLYCYRRHETINIC ACID) [Concomitant]
     Indication: HEPATIC FUNCTION ABNORMAL
     Dosage: DOSAGE IS UNCERTAIN.
     Route: 048
     Dates: start: 20161013, end: 20171204
  7. GASTER [Concomitant]
     Active Substance: FAMOTIDINE
     Indication: ABDOMINAL PAIN UPPER
     Dosage: DOSAGE IS UNCERTAIN.
     Route: 048
     Dates: start: 20170325, end: 20171204
  8. BEVACIZUMAB. [Suspect]
     Active Substance: BEVACIZUMAB
     Dosage: DOSE INTERVAL UNCERTAINTY
     Route: 041

REACTIONS (3)
  - Peritonitis [Recovered/Resolved]
  - Bone marrow failure [Unknown]
  - Intestinal obstruction [Recovered/Resolved]

NARRATIVE: CASE EVENT DATE: 20171204
